FAERS Safety Report 7744776-4 (Version None)
Quarter: 2011Q3

REPORT INFORMATION
  Report Type: 
  Country: None (occurrence: None)
  Receive Date: 20110912
  Receipt Date: 20110912
  Transmission Date: 20111222
  Serious: Yes (Other)
  Sender: FDA-Public Use
  Company Number: None

PATIENT
  Age: 76 Year
  Sex: Female

DRUGS (2)
  1. ROCEPHIN [Concomitant]
     Indication: URINARY TRACT INFECTION
     Dosage: 1 GM
     Route: 042
     Dates: start: 20110609, end: 20110612
  2. ZYVOX [Suspect]
     Indication: DEVICE RELATED INFECTION
     Dosage: 600 MG
     Route: 042
     Dates: start: 20110609, end: 20110620

REACTIONS (1)
  - THROMBOCYTOPENIA [None]
